FAERS Safety Report 19457199 (Version 1)
Quarter: 2021Q2

REPORT INFORMATION
  Report Type: Spontaneous
  Country: US (occurrence: US)
  Receive Date: 20210624
  Receipt Date: 20210624
  Transmission Date: 20210717
  Serious: No
  Sender: FDA-Public Use
  Company Number: US-BAYER-2021-153159

PATIENT
  Sex: Male

DRUGS (2)
  1. MACROGOL 3350 [Suspect]
     Active Substance: POLYETHYLENE GLYCOL 3350
     Indication: MYIASIS
     Dosage: 16 L, ONCE
     Route: 048
  2. MACROGOL 3350 [Suspect]
     Active Substance: POLYETHYLENE GLYCOL 3350
     Indication: IRON DEFICIENCY ANAEMIA

REACTIONS (2)
  - Overdose [Recovered/Resolved]
  - Off label use [Recovered/Resolved]
